FAERS Safety Report 19936461 (Version 1)
Quarter: 2021Q4

REPORT INFORMATION
  Report Type: Spontaneous
  Country: US (occurrence: US)
  Receive Date: 20211008
  Receipt Date: 20211008
  Transmission Date: 20220303
  Serious: No
  Sender: FDA-Public Use
  Company Number: US-SPROUT PHARMACEUTICALS, INC.-2021SP000068

PATIENT
  Age: 33 Year
  Sex: Female
  Weight: 79.45 kg

DRUGS (2)
  1. ADDYI [Suspect]
     Active Substance: FLIBANSERIN
     Indication: Libido decreased
     Route: 048
     Dates: start: 202103, end: 202103
  2. PROZAC [Concomitant]
     Active Substance: FLUOXETINE HYDROCHLORIDE
     Indication: Depression

REACTIONS (2)
  - Dyspnoea [Recovered/Resolved]
  - Myalgia [Recovered/Resolved]

NARRATIVE: CASE EVENT DATE: 20210301
